FAERS Safety Report 4668768-7 (Version None)
Quarter: 2005Q2

REPORT INFORMATION
  Report Type: 
  Country: None (occurrence: None)
  Receive Date: 20050523
  Receipt Date: 20041214
  Transmission Date: 20051028
  Serious: Yes (Hospitalization, Disabling, Other)
  Sender: FDA-Public Use
  Company Number: PHNU2004DE04176

PATIENT
  Sex: Female

DRUGS (7)
  1. ZOMETA [Suspect]
     Indication: METASTASES TO BONE
     Dosage: 4 MG, QMO
     Dates: start: 20030401, end: 20041201
  2. FEMARA [Concomitant]
     Indication: BREAST CANCER METASTATIC
     Dosage: 2.5 MG, QD
     Route: 048
     Dates: start: 20030401, end: 20040801
  3. AROMASIN [Concomitant]
     Indication: BREAST CANCER METASTATIC
     Route: 048
     Dates: start: 20040801
  4. VIOXX [Concomitant]
     Dosage: 25 MG, BID
     Route: 048
  5. MST [Concomitant]
     Dosage: 30 MG, BID
     Route: 048
  6. L-THYROXIN [Concomitant]
     Dosage: 100 UG, QD
     Route: 048
  7. SAROTEN [Concomitant]
     Dosage: 50 MG, QD
     Route: 048

REACTIONS (11)
  - BIOPSY BONE ABNORMAL [None]
  - COMPUTERISED TOMOGRAM ABNORMAL [None]
  - GINGIVAL DISORDER [None]
  - MALIGNANT NEOPLASM PROGRESSION [None]
  - MANDIBULECTOMY [None]
  - METASTASIS [None]
  - OSTEONECROSIS [None]
  - PAIN IN JAW [None]
  - PURULENT DISCHARGE [None]
  - SCINTIGRAPHY [None]
  - SURGERY [None]
